FAERS Safety Report 20057467 (Version 1)
Quarter: 2021Q4

REPORT INFORMATION
  Report Type: Spontaneous
  Country: SK (occurrence: SK)
  Receive Date: 20211111
  Receipt Date: 20211111
  Transmission Date: 20220303
  Serious: Yes (Death, Hospitalization)
  Sender: FDA-Public Use
  Company Number: SK-TAKEDA-2021TUS069851

PATIENT
  Age: 64 Year
  Sex: Female
  Weight: 29 kg

DRUGS (1)
  1. HYQVIA [Suspect]
     Active Substance: HUMAN IMMUNOGLOBULIN G\HYALURONIDASE RECOMBINANT HUMAN
     Indication: Crohn^s disease
     Dosage: UNK UNK, MONTHLY
     Route: 065
     Dates: start: 20160120

REACTIONS (3)
  - COVID-19 [Fatal]
  - Post-acute COVID-19 syndrome [Fatal]
  - Off label use [Unknown]
